FAERS Safety Report 7073465-7 (Version None)
Quarter: 2010Q4

REPORT INFORMATION
  Report Type: 
  Country: None (occurrence: None)
  Receive Date: 20101029
  Receipt Date: 20100806
  Transmission Date: 20110411
  Serious: No
  Sender: FDA-Public Use
  Company Number: A0866557A

PATIENT
  Age: 83 Year
  Sex: Female

DRUGS (9)
  1. ADVAIR DISKUS 100/50 [Suspect]
     Indication: ASTHMA
     Dosage: 1PUFF TWICE PER DAY
     Route: 055
     Dates: start: 20080101
  2. PLAVIX [Concomitant]
  3. LOVASTATIN [Concomitant]
  4. MICARDIS [Concomitant]
  5. COMBIVENT [Concomitant]
  6. MECLIZINE [Concomitant]
  7. VITAMIN D [Concomitant]
  8. PRILOSEC [Concomitant]
  9. AMLODIPINE [Concomitant]

REACTIONS (2)
  - DRUG INEFFECTIVE [None]
  - PRODUCT QUALITY ISSUE [None]
